FAERS Safety Report 6189514-4 (Version None)
Quarter: 2009Q2

REPORT INFORMATION
  Report Type: 
  Country: None (occurrence: None)
  Receive Date: 20090512
  Receipt Date: 20090427
  Transmission Date: 20091009
  Serious: Yes (Disabling)
  Sender: FDA-Public Use
  Company Number: 20090134

PATIENT
  Sex: Female

DRUGS (1)
  1. VENOFER [Suspect]
     Indication: IRON DEFICIENCY ANAEMIA
     Dosage: INTRAVENOUS DRIP
     Route: 041
     Dates: start: 20080101, end: 20080101

REACTIONS (2)
  - EXTRAVASATION [None]
  - INJECTION SITE DISCOLOURATION [None]
